FAERS Safety Report 4315638-X (Version None)
Quarter: 2004Q1

REPORT INFORMATION
  Report Type: 
  Country: None (occurrence: None)
  Receive Date: 20040311
  Receipt Date: 20040301
  Transmission Date: 20041129
  Serious: Yes (Other)
  Sender: FDA-Public Use
  Company Number: JP-GLAXOSMITHKLINE-B0325311A

PATIENT
  Age: 48 Year
  Sex: Male
  Weight: 54 kg

DRUGS (6)
  1. VALTREX [Suspect]
     Indication: HERPES ZOSTER
     Dosage: 1000MG TWICE PER DAY
     Route: 048
     Dates: start: 20040228, end: 20040229
  2. NORVASC [Concomitant]
     Indication: HYPERTENSION
     Dosage: 5MG TWICE PER DAY
     Route: 048
  3. ZESULAN [Concomitant]
     Dosage: 3MG TWICE PER DAY
     Route: 048
  4. CALTAN [Concomitant]
     Indication: BLOOD PHOSPHORUS INCREASED
     Dosage: 1.5G TWICE PER DAY
     Route: 048
  5. SANDONORM [Concomitant]
     Indication: HYPERTENSION
     Dosage: 1MG PER DAY
     Route: 048
  6. DIALYSIS [Concomitant]
     Dates: start: 19881025

REACTIONS (7)
  - CRYING [None]
  - DIPLOPIA [None]
  - DYSLALIA [None]
  - HALLUCINATION, VISUAL [None]
  - INSOMNIA [None]
  - INTENTIONAL SELF-INJURY [None]
  - OVERDOSE [None]
